FAERS Safety Report 12873980 (Version 3)
Quarter: 2016Q4

REPORT INFORMATION
  Report Type: Spontaneous
  Country: JP (occurrence: JP)
  Receive Date: 20161021
  Receipt Date: 20161222
  Transmission Date: 20170207
  Serious: Yes (Life-Threatening, Hospitalization)
  Sender: FDA-Public Use
  Company Number: JP-GUERBET LLC-1058625

PATIENT
  Age: 71 Year
  Sex: Female

DRUGS (5)
  1. LIPIODOL [Suspect]
     Active Substance: ETHIODIZED OIL
     Indication: TRANSCATHETER ARTERIAL CHEMOEMBOLISATION
     Route: 013
     Dates: start: 20160509, end: 20160509
  2. ATARAX [Concomitant]
     Active Substance: HYDROXYZINE\HYDROXYZINE HYDROCHLORIDE
  3. FLUOROURACIL. [Concomitant]
     Active Substance: FLUOROURACIL
     Route: 013
     Dates: start: 20160509
  4. PRECEDEX [Concomitant]
     Active Substance: DEXMEDETOMIDINE HYDROCHLORIDE
  5. CISPLATIN. [Concomitant]
     Active Substance: CISPLATIN
     Dates: start: 20160509, end: 20160509

REACTIONS (7)
  - Off label use [Recovered/Resolved]
  - Tumour lysis syndrome [Recovered/Resolved]
  - Pyrexia [Recovered/Resolved]
  - Nausea [Recovered/Resolved]
  - Pain [Recovered/Resolved]
  - Decreased appetite [Recovered/Resolved]
  - Malaise [Recovered/Resolved]

NARRATIVE: CASE EVENT DATE: 20160509
